FAERS Safety Report 13227598 (Version 1)
Quarter: 2017Q1

REPORT INFORMATION
  Report Type: Report from Study
  Country: US (occurrence: US)
  Receive Date: 20170213
  Receipt Date: 20170213
  Transmission Date: 20170428
  Serious: Yes (Other)
  Sender: FDA-Public Use
  Company Number: US-MYLANLABS-2017M1008023

PATIENT

DRUGS (15)
  1. PREDNISONE. [Suspect]
     Active Substance: PREDNISONE
     Indication: HODGKIN^S DISEASE
     Route: 065
  2. DACARBAZINE. [Suspect]
     Active Substance: DACARBAZINE
     Indication: HODGKIN^S DISEASE
     Route: 065
  3. DOXORUBICIN [Suspect]
     Active Substance: DOXORUBICIN
     Route: 065
  4. ETOPOSIDE. [Suspect]
     Active Substance: ETOPOSIDE
     Indication: HODGKIN^S DISEASE
     Route: 065
  5. VINBLASTINE [Suspect]
     Active Substance: VINBLASTINE
     Route: 065
  6. DOXORUBICIN [Suspect]
     Active Substance: DOXORUBICIN
     Indication: HODGKIN^S DISEASE
     Route: 065
  7. VINCRISTINE [Suspect]
     Active Substance: VINCRISTINE
     Route: 065
  8. VINBLASTINE [Suspect]
     Active Substance: VINBLASTINE
     Indication: HODGKIN^S DISEASE
     Route: 065
  9. BLEOMYCIN [Suspect]
     Active Substance: BLEOMYCIN SULFATE
     Indication: HODGKIN^S DISEASE
     Route: 065
  10. PREDNISONE. [Suspect]
     Active Substance: PREDNISONE
     Route: 065
  11. CHLORMETHINE [Suspect]
     Active Substance: MECHLORETHAMINE
     Indication: HODGKIN^S DISEASE
     Route: 065
  12. CHLORMETHINE [Suspect]
     Active Substance: MECHLORETHAMINE
     Route: 065
  13. VINCRISTINE [Suspect]
     Active Substance: VINCRISTINE
     Indication: HODGKIN^S DISEASE
     Route: 065
  14. PROCARBAZINE [Suspect]
     Active Substance: PROCARBAZINE
     Indication: HODGKIN^S DISEASE
     Route: 065
  15. BLEOMYCIN [Suspect]
     Active Substance: BLEOMYCIN SULFATE
     Route: 065

REACTIONS (1)
  - Acute myelomonocytic leukaemia [Unknown]
